FAERS Safety Report 9432876 (Version 3)
Quarter: 2013Q4

REPORT INFORMATION
  Report Type: Spontaneous
  Country: GB (occurrence: GB)
  Receive Date: 20130731
  Receipt Date: 20131011
  Transmission Date: 20140711
  Serious: Yes (Hospitalization, Other)
  Sender: FDA-Public Use
  Company Number: PHFR2013GB003562

PATIENT
  Age: 31 Year
  Sex: Male

DRUGS (3)
  1. CLOZARIL [Suspect]
     Indication: SCHIZOPHRENIA
     Dosage: UNK
     Route: 048
     Dates: start: 20070706
  2. CLOZARIL [Suspect]
     Dosage: 3500 G, UNK
     Route: 048
     Dates: start: 20130621
  3. CLOZARIL [Suspect]
     Dosage: 350 MG, QD
     Route: 048

REACTIONS (2)
  - Impulsive behaviour [Recovered/Resolved]
  - Overdose [Unknown]
